FAERS Safety Report 4863571-7 (Version None)
Quarter: 2005Q4

REPORT INFORMATION
  Report Type: 
  Country: None (occurrence: None)
  Receive Date: 20051222
  Receipt Date: 20050502
  Transmission Date: 20060501
  Serious: No
  Sender: FDA-Public Use
  Company Number: US-GLAXOSMITHKLINE-A0556914A

PATIENT
  Age: 51 Year
  Sex: Male

DRUGS (2)
  1. FLONASE [Suspect]
     Dosage: 2SPR PER DAY
     Route: 045
     Dates: start: 20050428, end: 20050428
  2. NO CONCURRENT MEDICATION [Concomitant]

REACTIONS (3)
  - HEADACHE [None]
  - SWELLING FACE [None]
  - URTICARIA [None]
